FAERS Safety Report 13228848 (Version 1)
Quarter: 2017Q1

REPORT INFORMATION
  Report Type: Report from Study
  Country: US (occurrence: US)
  Receive Date: 20170213
  Receipt Date: 20170213
  Transmission Date: 20170428
  Serious: No
  Sender: FDA-Public Use
  Company Number: US-AMGEN-USASL2017020226

PATIENT
  Sex: Male

DRUGS (1)
  1. ENBREL [Suspect]
     Active Substance: ETANERCEPT
     Indication: EXPOSURE DURING PREGNANCY
     Dosage: UNK UNK, 2 TIMES/WK
     Route: 064

REACTIONS (3)
  - Anxiety [Unknown]
  - Attention deficit/hyperactivity disorder [Not Recovered/Not Resolved]
  - Migraine [Recovering/Resolving]
